FAERS Safety Report 18260936 (Version 3)
Quarter: 2024Q4

REPORT INFORMATION
  Report Type: Spontaneous
  Country: FR (occurrence: FR)
  Receive Date: 20200914
  Receipt Date: 20241211
  Transmission Date: 20250114
  Serious: Yes (Death, Other)
  Sender: AUROBINDO
  Company Number: FR-MLMSERVICE-20200831-2461914-1

PATIENT
  Age: 67 Year
  Sex: Male

DRUGS (2)
  1. CARBOPLATIN [Suspect]
     Active Substance: CARBOPLATIN
     Indication: Non-small cell lung cancer stage III
     Dosage: UNK UNK, CYCLICAL
     Route: 065
  2. VINORELBINE [Suspect]
     Active Substance: VINORELBINE TARTRATE
     Indication: Non-small cell lung cancer stage III
     Dosage: UNK, CYCLICAL
     Route: 065

REACTIONS (2)
  - Pancytopenia [Fatal]
  - Oesophageal-pulmonary fistula [Fatal]
